FAERS Safety Report 23308153 (Version 2)
Quarter: 2023Q4

REPORT INFORMATION
  Report Type: Report from Study
  Country: US (occurrence: US)
  Receive Date: 20231218
  Receipt Date: 20231226
  Transmission Date: 20240109
  Serious: Yes (Other)
  Sender: FDA-Public Use
  Company Number: US-BAYER-2023A177049

PATIENT
  Age: 57 Year
  Sex: Male

DRUGS (3)
  1. ASPIRIN [Suspect]
     Active Substance: ASPIRIN
     Dosage: UNK
  2. ASPIRIN [Suspect]
     Active Substance: ASPIRIN
  3. ANTICOAGULANT III [Concomitant]

REACTIONS (1)
  - Cerebrovascular accident [Unknown]
